FAERS Safety Report 19686588 (Version 2)
Quarter: 2021Q3

REPORT INFORMATION
  Report Type: Report from Study
  Country: US (occurrence: US)
  Receive Date: 20210811
  Receipt Date: 20210920
  Transmission Date: 20211014
  Serious: No
  Sender: FDA-Public Use
  Company Number: US-ORGANON-O2108USA000477

PATIENT
  Age: 18 Year
  Sex: Female
  Weight: 78.01 kg

DRUGS (1)
  1. IMPLANON [Suspect]
     Active Substance: ETONOGESTREL
     Dosage: 1 IMPLANT (STRENGTH: 68 MG)
     Dates: start: 20210804, end: 20210804

REACTIONS (4)
  - Wrong technique in device usage process [Unknown]
  - No adverse event [Unknown]
  - Complication of device insertion [Unknown]
  - Product quality issue [Unknown]

NARRATIVE: CASE EVENT DATE: 20210804
